FAERS Safety Report 12943054 (Version 2)
Quarter: 2016Q4

REPORT INFORMATION
  Report Type: Report from Study
  Country: US (occurrence: US)
  Receive Date: 20161115
  Receipt Date: 20161202
  Transmission Date: 20170207
  Serious: No
  Sender: FDA-Public Use
  Company Number: US-ELI_LILLY_AND_COMPANY-US201611004160

PATIENT
  Sex: Female

DRUGS (2)
  1. HUMALOG [Suspect]
     Active Substance: INSULIN LISPRO
     Indication: TYPE 2 DIABETES MELLITUS
     Dosage: THREE TIMES A DAY ON A SLIDING SCALE
     Route: 065
     Dates: start: 201610
  2. HUMALOG [Suspect]
     Active Substance: INSULIN LISPRO
     Dosage: HREE TIMES A DAY ON A SLIDING SCALE
     Route: 065

REACTIONS (3)
  - Back disorder [Unknown]
  - Injection site bruising [Unknown]
  - Blood glucose decreased [Unknown]
